FAERS Safety Report 5504773-6 (Version None)
Quarter: 2007Q4

REPORT INFORMATION
  Report Type: 
  Country: None (occurrence: None)
  Receive Date: 20071031
  Receipt Date: 20071031
  Transmission Date: 20080405
  Serious: Yes (Other)
  Sender: FDA-Public Use
  Company Number: None

PATIENT
  Sex: Female

DRUGS (4)
  1. LEVAQUIN [Suspect]
     Indication: ABDOMINAL PAIN
     Dosage: 500MG (IV) DAILY
     Route: 042
  2. LEVAQUIN [Suspect]
     Indication: CYSTITIS
     Dosage: 500MG (IV) DAILY
     Route: 042
  3. LEVAQUIN [Suspect]
     Indication: HYPOVOLAEMIA
     Dosage: 500MG (IV) DAILY
     Route: 042
  4. LEVAQUIN [Suspect]
     Indication: MULTIPLE SCLEROSIS
     Dosage: 500MG (IV) DAILY
     Route: 042

REACTIONS (3)
  - INFUSION SITE ERYTHEMA [None]
  - INFUSION SITE REACTION [None]
  - PAIN IN EXTREMITY [None]
